FAERS Safety Report 16362163 (Version 1)
Quarter: 2019Q3

REPORT INFORMATION
  Report Type: Spontaneous
  Country: US (occurrence: US)
  Receive Date: 20190526
  Receipt Date: 20190526
  Transmission Date: 20191004
  Serious: Yes (Other)
  Sender: FDA-Public Use
  Company Number: None

PATIENT
  Age: 24 Year
  Sex: Female
  Weight: 69.75 kg

DRUGS (4)
  1. BUPRENORPHINE NALOXONE [Suspect]
     Active Substance: BUPRENORPHINE\NALOXONE
     Indication: DRUG DEPENDENCE
     Dosage: ?          QUANTITY:1 1;?
     Route: 060
     Dates: start: 20190508, end: 20190522
  2. ADDERALL 30 MG 1X A DAY [Concomitant]
  3. BACLOFEN 20 MG 2X A DAY [Concomitant]
  4. GABAPENTIN 600 MG 2 X A DAY [Concomitant]

REACTIONS (9)
  - Lacrimation increased [None]
  - Drug withdrawal syndrome [None]
  - Vomiting [None]
  - Eye irritation [None]
  - Hyperhidrosis [None]
  - Tongue discomfort [None]
  - Panic attack [None]
  - Chills [None]
  - Product substitution issue [None]

NARRATIVE: CASE EVENT DATE: 20190522
